FAERS Safety Report 19563673 (Version 1)
Quarter: 2021Q3

REPORT INFORMATION
  Report Type: Spontaneous
  Country: US (occurrence: US)
  Receive Date: 20210714
  Receipt Date: 20210714
  Transmission Date: 20211014
  Serious: No
  Sender: FDA-Public Use
  Company Number: US-TAKEDA-2021TUS042717

PATIENT
  Sex: Male

DRUGS (2)
  1. GAMMAGARD LIQUID [Suspect]
     Active Substance: HUMAN IMMUNOGLOBULIN G
     Dosage: 10 GRAM
     Route: 065
     Dates: start: 20210113
  2. GAMMAGARD LIQUID [Suspect]
     Active Substance: HUMAN IMMUNOGLOBULIN G
     Indication: IMMUNODEFICIENCY COMMON VARIABLE
     Dosage: 20 GRAM VIAL
     Route: 065
     Dates: start: 20210113

REACTIONS (3)
  - Inappropriate schedule of product administration [Unknown]
  - No adverse event [Unknown]
  - Product temperature excursion issue [Unknown]
